FAERS Safety Report 8159738-5 (Version None)
Quarter: 2012Q1

REPORT INFORMATION
  Report Type: 
  Country: None (occurrence: None)
  Receive Date: 20120223
  Receipt Date: 20120215
  Transmission Date: 20120608
  Serious: Yes (Hospitalization)
  Sender: FDA-Public Use
  Company Number: US-BAYER-2012-017003

PATIENT
  Age: 35 Year
  Sex: Female

DRUGS (6)
  1. YAZ [Suspect]
  2. NEURONTIN [Concomitant]
     Dosage: 600 MG, QD
  3. TOPAMAX [Concomitant]
     Dosage: 50 MG, BID
  4. EXCEDRIN [Concomitant]
  5. TRAZODONE HCL [Concomitant]
     Dosage: 50 MG, QD
     Route: 048
  6. YASMIN [Suspect]

REACTIONS (1)
  - PULMONARY EMBOLISM [None]
